FAERS Safety Report 15318858 (Version 1)
Quarter: 2018Q3

REPORT INFORMATION
  Report Type: Spontaneous
  Country: US (occurrence: US)
  Receive Date: 20180817
  Receipt Date: 20180817
  Transmission Date: 20181010
  Serious: Yes (Hospitalization, Disabling)
  Sender: FDA-Public Use
  Company Number: None

PATIENT
  Age: 57 Year
  Sex: Male
  Weight: 63.5 kg

DRUGS (14)
  1. ZYRTEC [Concomitant]
     Active Substance: CETIRIZINE HYDROCHLORIDE
  2. GINGER. [Concomitant]
     Active Substance: GINGER
  3. HCL WITH PEPSIN [Concomitant]
  4. HYDROCORTISONE. [Concomitant]
     Active Substance: HYDROCORTISONE
  5. ALOE VERA [Concomitant]
     Active Substance: ALOE VERA LEAF
  6. DR WILSON^S ADRENAL REBUILDER [Concomitant]
  7. LORAZAPAM [Concomitant]
     Active Substance: LORAZEPAM
  8. DIGESTIVE ENZYMES [Concomitant]
     Active Substance: UNSPECIFIED INGREDIENT
  9. GRAPEFRUIT SEED EXTRACT [Concomitant]
     Active Substance: GRAPEFRUIT SEED EXTRACT
  10. BACTRIM DS [Suspect]
     Active Substance: SULFAMETHOXAZOLE\TRIMETHOPRIM
     Indication: SINUSITIS
     Dosage: ?          QUANTITY:1 PILL;?
     Route: 048
     Dates: start: 20170406, end: 20170415
  11. HYDROCODONE [Concomitant]
     Active Substance: HYDROCODONE
  12. L GLUTAMINE [Concomitant]
     Active Substance: GLUTAMINE
  13. MAGNESIUM CITRATE/OXIDE [Concomitant]
  14. LACTOPRIME PLUS PROBIOTIC [Concomitant]

REACTIONS (11)
  - Constipation [None]
  - Gastrointestinal bacterial overgrowth [None]
  - Hypothyroidism [None]
  - Adrenal insufficiency [None]
  - Fatigue [None]
  - Quality of life decreased [None]
  - Myalgia [None]
  - Urticaria [None]
  - Inflammation [None]
  - Weight decreased [None]
  - Dyspepsia [None]

NARRATIVE: CASE EVENT DATE: 20170406
